FAERS Safety Report 11197397 (Version 6)
Quarter: 2015Q3

REPORT INFORMATION
  Report Type: Spontaneous
  Country: US (occurrence: US)
  Receive Date: 20150617
  Receipt Date: 20150923
  Transmission Date: 20151125
  Serious: Yes (Other)
  Sender: FDA-Public Use
  Company Number: US-009507513-1506USA008870

PATIENT
  Sex: Female
  Weight: 107.3 kg

DRUGS (2)
  1. NEXPLANON [Suspect]
     Active Substance: ETONOGESTREL
     Dosage: 1 ROD/3 YEARS
     Route: 059
     Dates: start: 201506
  2. NEXPLANON [Suspect]
     Active Substance: ETONOGESTREL
     Indication: CONTRACEPTION
     Dosage: 1 ROD/3 YEARS,
     Route: 059
     Dates: start: 20140212, end: 20150608

REACTIONS (2)
  - No adverse event [Unknown]
  - Device breakage [Recovered/Resolved]
